FAERS Safety Report 5451806-1 (Version None)
Quarter: 2007Q3

REPORT INFORMATION
  Report Type: 
  Country: None (occurrence: None)
  Receive Date: 20070912
  Receipt Date: 20070802
  Transmission Date: 20080115
  Serious: Yes (Hospitalization)
  Sender: FDA-Public Use
  Company Number: 001#1#2007-00515

PATIENT
  Age: 86 Year
  Sex: Female

DRUGS (10)
  1. ALPROSTADIL [Suspect]
     Indication: PERIPHERAL ISCHAEMIA
     Dosage: 80 MCG (40 MCG 2 IN 1 DAY (S)) INTRAVENOUS (NOT OTHERWISE SPECIFIED)
     Route: 042
     Dates: start: 20070709, end: 20070720
  2. RINGERS INJECTION IN PLASTIC CONTAINER [Suspect]
     Dosage: 400 ML (200 ML 2 IN 1 DAY (S)) INTRAVENOUS (NOT OTHERWISE SPECIFIED)
     Route: 042
     Dates: start: 20070709, end: 20070720
  3. ACETYLSALICYLIC ACID SRT [Suspect]
     Indication: DRY GANGRENE
     Dosage: 100 MG (100 MG 1 IN 1 DAY (S)) ORAL
     Route: 048
  4. ACETYLSALICYLIC ACID SRT [Suspect]
     Indication: PERIPHERAL ISCHAEMIA
     Dosage: 100 MG (100 MG 1 IN 1 DAY (S)) ORAL
     Route: 048
  5. CLOPIDOGREL BISULFATE [Suspect]
     Indication: DRY GANGRENE
     Dosage: 75 MCMOL (75 MG 1 IN 1 DAY (S)) ORAL
     Route: 048
  6. CLOPIDOGREL BISULFATE [Suspect]
     Indication: PERIPHERAL ISCHAEMIA
     Dosage: 75 MCMOL (75 MG 1 IN 1 DAY (S)) ORAL
     Route: 048
  7. ENOXAPARIN SODIUM [Suspect]
     Indication: DRY GANGRENE
     Dosage: 80 MG (40 MG 2 IN 1 DAY (S))
  8. HEPARIN [Concomitant]
  9. INSULIN (INSULIN) [Concomitant]
  10. NEUROTRAT (CYANOCOBALAMIN, LIVER EXTRACT, PYRIDOXINE HYDROCHLORIDE, TH [Concomitant]

REACTIONS (2)
  - ANEURYSM [None]
  - POST PROCEDURAL HAEMATOMA [None]
